FAERS Safety Report 15234538 (Version 1)
Quarter: 2018Q4

REPORT INFORMATION
  Report Type: Spontaneous
  Country: US (occurrence: US)
  Receive Date: 20180803
  Receipt Date: 20180803
  Transmission Date: 20190204
  Serious: Yes (Life-Threatening)
  Sender: FDA-Public Use
  Company Number: US-JNJFOC-20180729449

PATIENT
  Sex: Male

DRUGS (2)
  1. SUDAFED PE PRESSURE PLUS PAIN [Suspect]
     Active Substance: ACETAMINOPHEN\PHENYLEPHRINE HYDROCHLORIDE
     Indication: SINUS CONGESTION
     Route: 048
  2. SUDAFED PE PRESSURE PLUS PAIN [Suspect]
     Active Substance: ACETAMINOPHEN\PHENYLEPHRINE HYDROCHLORIDE
     Indication: SINUS CONGESTION
     Dosage: TOOK 3 TABLETS
     Route: 048
     Dates: start: 20180720, end: 20180720

REACTIONS (3)
  - Cardiac arrest [Recovered/Resolved]
  - Incorrect dose administered [Unknown]
  - Circulatory collapse [Recovered/Resolved]

NARRATIVE: CASE EVENT DATE: 20180720
